FAERS Safety Report 7650854-0 (Version None)
Quarter: 2011Q3

REPORT INFORMATION
  Report Type: 
  Country: None (occurrence: None)
  Receive Date: 20110802
  Receipt Date: 20110729
  Transmission Date: 20111222
  Serious: Yes (Hospitalization)
  Sender: FDA-Public Use
  Company Number: US-BRISTOL-MYERS SQUIBB COMPANY-15929193

PATIENT
  Age: 2 Year
  Sex: Male
  Weight: 15 kg

DRUGS (1)
  1. ABILIFY [Suspect]

REACTIONS (1)
  - ACCIDENTAL EXPOSURE [None]
